FAERS Safety Report 19899632 (Version 1)
Quarter: 2021Q3

REPORT INFORMATION
  Report Type: Spontaneous
  Country: DE (occurrence: DE)
  Receive Date: 20210929
  Receipt Date: 20210929
  Transmission Date: 20211014
  Serious: Yes (Hospitalization)
  Sender: FDA-Public Use
  Company Number: DE-MYLANLABS-2021M1066558

PATIENT
  Age: 58 Year
  Sex: Male

DRUGS (11)
  1. TRIMIPRAMIN                        /00051802/ [Concomitant]
     Active Substance: TRIMIPRAMINE MALEATE
     Dosage: 100 MILLIGRAM, QD (100 MG, 0?0?2?0, TABLETTEN)
  2. VALSARTAN. [Concomitant]
     Active Substance: VALSARTAN
     Dosage: 160 MILLIGRAM, BID (160 MG, 0.5?0?0.5?0, TABLETTEN)
  3. METFORMIN [Interacting]
     Active Substance: METFORMIN HYDROCHLORIDE
     Indication: PRODUCT USED FOR UNKNOWN INDICATION
     Dosage: 100 MILLIGRAM, BID (100 MG, 1?0?1?0, TABLETTEN)
  4. METAMIZOL                          /06276701/ [Concomitant]
     Active Substance: METAMIZOLE
     Dosage: 500 MILLIGRAM (500 MG, BEDARF, TABLETTEN)
  5. VALDOXAN [Concomitant]
     Active Substance: AGOMELATINE
     Dosage: 25 MILLIGRAM, QD (25 MG, 0?0?0?2, TABLETTEN)
  6. DIGITOXIN [Interacting]
     Active Substance: DIGITOXIN
     Indication: PRODUCT USED FOR UNKNOWN INDICATION
     Dosage: 0.1 MILLIGRAM, QD (0.1 MG, 1?0?0?0, TABLETTEN)
  7. SIMVASTATIN. [Concomitant]
     Active Substance: SIMVASTATIN
     Dosage: 20 MILLIGRAM, QD (20 MG, 0?0?0?1, TABLETTEN)
  8. PRADAXA [Concomitant]
     Active Substance: DABIGATRAN ETEXILATE MESYLATE
     Dosage: 150 MILLIGRAM, BID (150 MG, 1?0?1?0, TABLETTEN)
  9. VERAPAMIL [Suspect]
     Active Substance: VERAPAMIL HYDROCHLORIDE
     Indication: PRODUCT USED FOR UNKNOWN INDICATION
     Dosage: 120 MILLIGRAM, QD (120 MG, 0?0?1?0, TABLETTEN)
  10. PANTOPRAZOL                        /01263201/ [Concomitant]
     Active Substance: PANTOPRAZOLE
     Dosage: 40 MILLIGRAM, QD (40 MG, 0?0?0?1, TABLETTEN)
  11. ALPRAZOLAM. [Concomitant]
     Active Substance: ALPRAZOLAM
     Dosage: 1 MILLIGRAM (1 MG, BEDARF, TABLETTEN)

REACTIONS (6)
  - Polydipsia [Unknown]
  - Hyperglycaemia [Unknown]
  - Asthenia [Unknown]
  - Bradycardia [Unknown]
  - Labelled drug-drug interaction medication error [Unknown]
  - Polyuria [Unknown]
